FAERS Safety Report 5904567-3 (Version None)
Quarter: 2008Q4

REPORT INFORMATION
  Report Type: 
  Country: None (occurrence: None)
  Receive Date: 20081001
  Receipt Date: 20080918
  Transmission Date: 20090506
  Serious: Yes (Life-Threatening, Hospitalization, Other)
  Sender: FDA-Public Use
  Company Number: DE-ELI_LILLY_AND_COMPANY-DE200807003617

PATIENT
  Sex: Male

DRUGS (1)
  1. FORTEO [Suspect]
     Indication: OSTEOPOROSIS
     Dosage: 20 UG, DAILY (1/D)
     Route: 058
     Dates: start: 20080501, end: 20080604

REACTIONS (8)
  - ATRIOVENTRICULAR BLOCK [None]
  - CARDIAC ARREST [None]
  - CHOLELITHIASIS [None]
  - DYSPNOEA [None]
  - HEPATIC STEATOSIS [None]
  - HYPERHIDROSIS [None]
  - PLEURAL EFFUSION [None]
  - URINARY TRACT INFECTION [None]
